FAERS Safety Report 4990888-8 (Version None)
Quarter: 2006Q2

REPORT INFORMATION
  Report Type: 
  Country: None (occurrence: None)
  Receive Date: 20060427
  Receipt Date: 20060412
  Transmission Date: 20061013
  Serious: Yes (Death, Other)
  Sender: FDA-Public Use
  Company Number: GXKR2006JP02142

PATIENT
  Age: 80 Year
  Sex: Male

DRUGS (3)
  1. RIFAMPICIN [Suspect]
  2. ISONIAZID [Concomitant]
  3. ETHAMBUTOL [Concomitant]

REACTIONS (3)
  - CARDIAC FAILURE [None]
  - CONDITION AGGRAVATED [None]
  - RASH [None]
